FAERS Safety Report 7653026-9 (Version None)
Quarter: 2011Q3

REPORT INFORMATION
  Report Type: 
  Country: None (occurrence: None)
  Receive Date: 20110803
  Receipt Date: 20110628
  Transmission Date: 20111222
  Serious: Yes (Other)
  Sender: FDA-Public Use
  Company Number: IR-ROCHE-792536

PATIENT
  Sex: Male
  Weight: 75.5 kg

DRUGS (1)
  1. TOCILIZUMAB [Suspect]
     Indication: RHEUMATOID ARTHRITIS
     Route: 042
     Dates: start: 20101114, end: 20110402

REACTIONS (1)
  - RHEUMATOID ARTHRITIS [None]
